FAERS Safety Report 8346877-9 (Version None)
Quarter: 2012Q2

REPORT INFORMATION
  Report Type: 
  Country: None (occurrence: None)
  Receive Date: 20120509
  Receipt Date: 20120503
  Transmission Date: 20120825
  Serious: Yes (Other)
  Sender: FDA-Public Use
  Company Number: VE-ABBOTT-12P-178-0932661-00

PATIENT
  Sex: Female
  Weight: 79 kg

DRUGS (3)
  1. CALCIUM [Concomitant]
     Indication: MINERAL SUPPLEMENTATION
     Route: 048
  2. HUMIRA [Suspect]
     Indication: RHEUMATOID ARTHRITIS
     Route: 058
     Dates: start: 20081201, end: 20111108
  3. ISONIAZIDA [Concomitant]
     Indication: PROPHYLAXIS
     Route: 048
     Dates: start: 20120401

REACTIONS (1)
  - TUBERCULIN TEST POSITIVE [None]
